FAERS Safety Report 7940424-9 (Version None)
Quarter: 2011Q4

REPORT INFORMATION
  Report Type: 
  Country: None (occurrence: None)
  Receive Date: 20111127
  Receipt Date: 20111121
  Transmission Date: 20120403
  Serious: Yes (Hospitalization)
  Sender: FDA-Public Use
  Company Number: CA-BRISTOL-MYERS SQUIBB COMPANY-16167587

PATIENT
  Age: 84 Year
  Sex: Female

DRUGS (7)
  1. INSULIN [Concomitant]
  2. ASPIRIN [Concomitant]
  3. SPRYCEL [Suspect]
     Indication: CHRONIC MYELOID LEUKAEMIA
     Route: 048
     Dates: start: 20110524, end: 20110801
  4. FUROSEMIDE [Concomitant]
  5. VALSARTAN [Concomitant]
  6. PLAVIX [Concomitant]
  7. DILTIAZEM [Concomitant]

REACTIONS (4)
  - FLUID RETENTION [None]
  - CARDIAC FAILURE CONGESTIVE [None]
  - DYSPHAGIA [None]
  - SPEECH DISORDER [None]
